FAERS Safety Report 23281437 (Version 2)
Quarter: 2023Q4

REPORT INFORMATION
  Report Type: Spontaneous
  Country: GB (occurrence: GB)
  Receive Date: 20231211
  Receipt Date: 20231226
  Transmission Date: 20240110
  Serious: Yes (Hospitalization, Other)
  Sender: FDA-Public Use
  Company Number: GB-MLMSERVICE-20231127-4691158-1

PATIENT
  Age: 14 Year
  Sex: Female
  Weight: 57 kg

DRUGS (16)
  1. ONDANSETRON [Interacting]
     Active Substance: ONDANSETRON
     Indication: Antiemetic supportive care
     Dosage: 4 MG
     Route: 042
  2. PROPOFOL [Interacting]
     Active Substance: PROPOFOL
     Indication: Induction of anaesthesia
     Dosage: 200 MG
     Route: 042
  3. PROPOFOL [Interacting]
     Active Substance: PROPOFOL
     Dosage: REPEAT ANAESTHESIA, 200 MG
     Route: 065
  4. PROPOFOL [Interacting]
     Active Substance: PROPOFOL
     Dosage: MAINTAINED WITH 1% INFUSION AT 30 ML.H1
     Route: 065
  5. PROPOFOL [Interacting]
     Active Substance: PROPOFOL
     Dosage: MAINTAINED WITH 500 MCG.ML1
     Route: 065
  6. ACETAMINOPHEN [Concomitant]
     Active Substance: ACETAMINOPHEN
     Indication: Analgesic therapy
     Dosage: 1 G
     Route: 042
  7. FENTANYL [Concomitant]
     Active Substance: FENTANYL\FENTANYL CITRATE
     Indication: Induction of anaesthesia
     Dosage: 125 MCG
     Route: 042
  8. FENTANYL [Concomitant]
     Active Substance: FENTANYL\FENTANYL CITRATE
     Dosage: REPEAT ANAESTHESIA, 100 MCG
     Route: 065
  9. OXYGEN [Concomitant]
     Active Substance: OXYGEN
     Indication: Maintenance of anaesthesia
     Route: 065
  10. SEVOFLURANE [Concomitant]
     Active Substance: SEVOFLURANE
     Indication: Maintenance of anaesthesia
     Dosage: 1 MAC OF SEVOFLURANE IN OXYGEN AND AIR
     Route: 065
  11. AIR [Concomitant]
     Active Substance: AIR
     Indication: Maintenance of anaesthesia
     Route: 065
  12. DEXAMETHASONE [Concomitant]
     Active Substance: DEXAMETHASONE
     Indication: Antiemetic supportive care
     Dosage: 3.3 MG
     Route: 042
  13. LEVOBUPIVACAINE [Concomitant]
     Active Substance: LEVOBUPIVACAINE
     Indication: Local anaesthesia
     Dosage: INFILTRATION OF 40 ML 0.25%
     Route: 058
  14. ROCURONIUM [Concomitant]
     Active Substance: ROCURONIUM BROMIDE
     Indication: Anaesthesia
     Dosage: REPEAT ANAESTHESIA, 50 MG
     Route: 065
  15. ALFENTANIL [Concomitant]
     Active Substance: ALFENTANIL
     Dosage: INFUSION AT 2.5 MG.H1
     Route: 065
  16. CEFTRIAXONE [Concomitant]
     Active Substance: CEFTRIAXONE\CEFTRIAXONE SODIUM
     Indication: Encephalitis
     Dosage: ANTIBIOTIC COVER FOR MENINGOENCEPHALITIS WITH 2 G
     Route: 042

REACTIONS (12)
  - Torticollis [Recovered/Resolved]
  - Oculogyric crisis [Recovered/Resolved]
  - Dystonia [Recovered/Resolved]
  - Posture abnormal [Recovered/Resolved]
  - Dyskinesia [Recovered/Resolved]
  - Back pain [Recovered/Resolved]
  - Pain in extremity [Recovered/Resolved]
  - Communication disorder [Recovered/Resolved]
  - Tachycardia [Recovered/Resolved]
  - Pyrexia [Recovered/Resolved]
  - Muscle spasms [Recovered/Resolved]
  - Drug interaction [Unknown]
